FAERS Safety Report 8037741-3 (Version None)
Quarter: 2012Q1

REPORT INFORMATION
  Report Type: 
  Country: None (occurrence: None)
  Receive Date: 20120111
  Receipt Date: 20120102
  Transmission Date: 20120608
  Serious: Yes (Death)
  Sender: FDA-Public Use
  Company Number: US-BAYER-2012-002069

PATIENT
  Age: 17 Year
  Sex: Female

DRUGS (3)
  1. CAFFEINE CITRATE [Suspect]
  2. THEOPHYLLINE [Suspect]
  3. DIPHENHYDRAMINE HCL [Suspect]

REACTIONS (1)
  - TOXICITY TO VARIOUS AGENTS [None]
